FAERS Safety Report 7334083-6 (Version None)
Quarter: 2011Q1

REPORT INFORMATION
  Report Type: 
  Country: None (occurrence: None)
  Receive Date: 20110307
  Receipt Date: 20110303
  Transmission Date: 20110831
  Serious: Yes (Hospitalization, Other)
  Sender: FDA-Public Use
  Company Number: US-BAYER-2011-020007

PATIENT
  Sex: Female

DRUGS (1)
  1. YASMIN [Suspect]
     Dosage: UNK
     Route: 048
     Dates: start: 20060101, end: 20081201

REACTIONS (7)
  - PAIN [None]
  - VISUAL IMPAIRMENT [None]
  - INJURY [None]
  - ANXIETY [None]
  - DISORIENTATION [None]
  - EMBOLIC STROKE [None]
  - DEPRESSED MOOD [None]
